FAERS Safety Report 6131316-9 (Version None)
Quarter: 2009Q1

REPORT INFORMATION
  Report Type: 
  Country: None (occurrence: None)
  Receive Date: 20090325
  Receipt Date: 20080313
  Transmission Date: 20090719
  Serious: Yes (Hospitalization)
  Sender: FDA-Public Use
  Company Number: US-BRISTOL-MYERS SQUIBB COMPANY-14114326

PATIENT
  Age: 74 Year
  Sex: Male

DRUGS (4)
  1. ERBITUX [Suspect]
     Indication: TONGUE NEOPLASM MALIGNANT STAGE UNSPECIFIED
     Dates: start: 20080310
  2. DEXAMETHASONE TAB [Concomitant]
     Indication: PREMEDICATION
  3. DIPHENHYDRAMINE [Concomitant]
     Indication: PREMEDICATION
  4. HYDRATION [Concomitant]
     Indication: PREMEDICATION

REACTIONS (1)
  - ANAPHYLACTIC REACTION [None]
